FAERS Safety Report 9572406 (Version 1)
Quarter: 2013Q4

REPORT INFORMATION
  Report Type: Spontaneous
  Country: US (occurrence: None)
  Receive Date: 20130930
  Receipt Date: 20130930
  Transmission Date: 20140711
  Serious: Yes (Other)
  Sender: FDA-Public Use
  Company Number: None

PATIENT
  Age: 57 Year
  Sex: Female

DRUGS (2)
  1. CITALOPRAM 20MG/D TEVA [Suspect]
     Indication: BIPOLAR DISORDER
     Dosage: 20MG/D PO X 4WK
     Route: 048
     Dates: start: 20130820
  2. QUETIAPINE 200MG BID (MFG UNK) [Suspect]
     Dosage: 200MG PO BID X 8YRS
     Route: 048
     Dates: start: 2005

REACTIONS (1)
  - Ill-defined disorder [None]
